FAERS Safety Report 11364279 (Version 1)
Quarter: 2015Q3

REPORT INFORMATION
  Report Type: Spontaneous
  Country: US (occurrence: US)
  Receive Date: 20150811
  Receipt Date: 20150811
  Transmission Date: 20151125
  Serious: Yes (Death, Other)
  Sender: FDA-Public Use
  Company Number: US-PFIZER INC-2015245750

PATIENT
  Age: 47 Year
  Sex: Female

DRUGS (2)
  1. PHENOBARBITAL. [Suspect]
     Active Substance: PHENOBARBITAL
     Dosage: 100 MG, 3X/DAY
  2. DILANTIN [Suspect]
     Active Substance: PHENYTOIN
     Dosage: 100 MG, 3X/DAY

REACTIONS (10)
  - Lymphocytic infiltration [Fatal]
  - Lymphadenopathy [Fatal]
  - Dysarthria [Unknown]
  - Hepatotoxicity [Fatal]
  - Respiratory tract haemorrhage [Unknown]
  - Ataxia [Unknown]
  - Increased bronchial secretion [Fatal]
  - Hepatic failure [Unknown]
  - Renal failure [Unknown]
  - Anaemia megaloblastic [Unknown]
